FAERS Safety Report 16943815 (Version 1)
Quarter: 2019Q4

REPORT INFORMATION
  Report Type: Report from Study
  Country: DE (occurrence: DE)
  Receive Date: 20191022
  Receipt Date: 20191022
  Transmission Date: 20200122
  Serious: Yes (Congenital Anomaly, Other)
  Sender: FDA-Public Use
  Company Number: DE-DEXPHARM-20190893

PATIENT
  Age: 0 Day
  Sex: Male
  Weight: 2.43 kg

DRUGS (3)
  1. VALPROIC ACID. [Interacting]
     Active Substance: VALPROIC ACID
     Dosage: DAILY DOSE: 1000 MG MILLIGRAM(S) EVERY DAY
     Route: 064
     Dates: start: 2001
  2. LAMOTRIGINE. [Interacting]
     Active Substance: LAMOTRIGINE
     Dosage: DAILY DOSE: 350 MG MILLIGRAM(S) EVERY DAY
     Dates: start: 2003, end: 20050622
  3. LEVETIRACETAM. [Suspect]
     Active Substance: LEVETIRACETAM
     Dosage: DAILY DOSE: 1000 MG MILLIGRAM(S) EVERY DAY
     Route: 064
     Dates: start: 20050525

REACTIONS (7)
  - Neurodevelopmental disorder [Not Recovered/Not Resolved]
  - Drug interaction [Recovered/Resolved]
  - Supraventricular tachycardia [Not Recovered/Not Resolved]
  - Ventricular septal defect [Not Recovered/Not Resolved]
  - Maternal exposure during pregnancy [Unknown]
  - Low birth weight baby [Unknown]
  - Atrial septal defect [Not Recovered/Not Resolved]
